FAERS Safety Report 10347307 (Version 1)
Quarter: 2014Q3

REPORT INFORMATION
  Report Type: Spontaneous
  Country: US (occurrence: US)
  Receive Date: 20140729
  Receipt Date: 20140729
  Transmission Date: 20150326
  Serious: No
  Sender: FDA-Public Use
  Company Number: US-PFIZER INC-2014206729

PATIENT
  Age: 17 Year
  Sex: Female
  Weight: 95.2 kg

DRUGS (1)
  1. DEPO-PROVERA [Suspect]
     Active Substance: MEDROXYPROGESTERONE ACETATE
     Indication: AMENORRHOEA
     Dosage: UNK, EVERY 3 MONTHS
     Dates: start: 20140401

REACTIONS (1)
  - Menometrorrhagia [Not Recovered/Not Resolved]

NARRATIVE: CASE EVENT DATE: 20140523
